FAERS Safety Report 5505898-1 (Version None)
Quarter: 2007Q4

REPORT INFORMATION
  Report Type: 
  Country: None (occurrence: None)
  Receive Date: 20071102
  Receipt Date: 20071023
  Transmission Date: 20080405
  Serious: Yes (Other)
  Sender: FDA-Public Use
  Company Number: FR-PFIZER INC-2007090404

PATIENT
  Age: 62 Year
  Sex: Male

DRUGS (5)
  1. LYRICA [Suspect]
  2. LESCOL [Concomitant]
  3. NEBIVOLOL [Concomitant]
  4. MEDIATENSYL [Concomitant]
  5. LASIX [Concomitant]

REACTIONS (4)
  - INCREASED APPETITE [None]
  - INTENTIONAL DRUG MISUSE [None]
  - OEDEMA [None]
  - WEIGHT INCREASED [None]
